FAERS Safety Report 6642837-4 (Version None)
Quarter: 2010Q1

REPORT INFORMATION
  Report Type: 
  Country: None (occurrence: None)
  Receive Date: 20100319
  Receipt Date: 20100305
  Transmission Date: 20100710
  Serious: Yes (Hospitalization, Other)
  Sender: FDA-Public Use
  Company Number: US-ELI_LILLY_AND_COMPANY-US201002000567

PATIENT
  Sex: Female

DRUGS (6)
  1. FORTEO [Suspect]
     Indication: OSTEOPOROSIS
     Dosage: 20 UG, DAILY (1/D)
     Route: 065
     Dates: start: 20090601, end: 20091113
  2. CALCIUM [Concomitant]
     Indication: SUPPLEMENTATION THERAPY
  3. VITAMIN D [Concomitant]
     Indication: SUPPLEMENTATION THERAPY
  4. MORPHINE [Concomitant]
     Dosage: 0.5 MG, AS NEEDED
  5. CLONAZEPAM [Concomitant]
     Dosage: 0.5 MG, 3/D
  6. CARBIDOPA-LEVODOPA [Concomitant]
     Dosage: UNK D/F, UNK

REACTIONS (6)
  - ABDOMINAL PAIN UPPER [None]
  - ARTHROPATHY [None]
  - DYSPHAGIA [None]
  - MUSCULOSKELETAL PAIN [None]
  - PAIN IN EXTREMITY [None]
  - WEIGHT DECREASED [None]
